FAERS Safety Report 9341238 (Version 1)
Quarter: 2013Q2

REPORT INFORMATION
  Report Type: Report from Study
  Country: BR (occurrence: BR)
  Receive Date: 20130611
  Receipt Date: 20130611
  Transmission Date: 20140414
  Serious: Yes (Other)
  Sender: FDA-Public Use
  Company Number: BR-ROCHE-1135211

PATIENT
  Sex: Female
  Weight: 45 kg

DRUGS (4)
  1. INTERFERON ALFA-2A [Suspect]
     Indication: HEPATITIS C
     Route: 058
     Dates: start: 2006, end: 2007
  2. INTERFERON ALFA-2A [Suspect]
     Route: 058
     Dates: start: 2009, end: 2010
  3. RIBAVIRINA [Suspect]
     Indication: HEPATITIS C
     Route: 048
     Dates: start: 2006, end: 2007
  4. RIBAVIRINA [Suspect]
     Route: 048
     Dates: start: 2009, end: 2010

REACTIONS (12)
  - Drug ineffective [Unknown]
  - Therapeutic response decreased [Unknown]
  - Hepatitis C [Unknown]
  - Decreased appetite [Recovered/Resolved]
  - Nervousness [Recovered/Resolved]
  - Nausea [Recovered/Resolved]
  - Pruritus generalised [Recovered/Resolved]
  - Pruritus [Recovered/Resolved]
  - Chills [Recovered/Resolved]
  - Dizziness [Recovered/Resolved]
  - Pain [Not Recovered/Not Resolved]
  - Headache [Not Recovered/Not Resolved]
